FAERS Safety Report 6337293-X (Version None)
Quarter: 2009Q3

REPORT INFORMATION
  Report Type: 
  Country: None (occurrence: None)
  Receive Date: 20090901
  Receipt Date: 20090901
  Transmission Date: 20100115
  Serious: Yes (Other)
  Sender: FDA-Public Use
  Company Number: None

PATIENT
  Sex: Male
  Weight: 61.8 kg

DRUGS (1)
  1. CHOLETEC [Suspect]
     Indication: CHOLECYSTITIS
     Dosage: 7.4 MCI ONCE IV
     Route: 042
     Dates: start: 20090816

REACTIONS (9)
  - AGITATION [None]
  - CHILLS [None]
  - DYSPNOEA [None]
  - FEELING COLD [None]
  - FEELING HOT [None]
  - HEART RATE INCREASED [None]
  - NAUSEA [None]
  - RASH MACULAR [None]
  - VOMITING [None]
